FAERS Safety Report 19684221 (Version 2)
Quarter: 2021Q3

REPORT INFORMATION
  Report Type: Spontaneous
  Country: US (occurrence: US)
  Receive Date: 20210811
  Receipt Date: 20210811
  Transmission Date: 20211014
  Serious: No
  Sender: FDA-Public Use
  Company Number: US-PFIZER INC-2021888461

PATIENT
  Age: 50 Year
  Sex: Female
  Weight: 81.63 kg

DRUGS (7)
  1. METHOTREXATE SODIUM. [Suspect]
     Active Substance: METHOTREXATE SODIUM
  2. NAPROXEN SODIUM. [Suspect]
     Active Substance: NAPROXEN SODIUM
  3. DIAZEPAM. [Suspect]
     Active Substance: DIAZEPAM
  4. EFFEXOR XR [Suspect]
     Active Substance: VENLAFAXINE HYDROCHLORIDE
     Dosage: UNK
  5. ASPIRIN. [Suspect]
     Active Substance: ASPIRIN
  6. TORADOL [Suspect]
     Active Substance: KETOROLAC TROMETHAMINE
  7. IBUPROFEN. [Suspect]
     Active Substance: IBUPROFEN

REACTIONS (1)
  - Drug hypersensitivity [Unknown]
